FAERS Safety Report 4827208-5 (Version None)
Quarter: 2005Q4

REPORT INFORMATION
  Report Type: 
  Country: None (occurrence: None)
  Receive Date: 20051114
  Receipt Date: 20051102
  Transmission Date: 20060501
  Serious: Yes (Hospitalization)
  Sender: FDA-Public Use
  Company Number: PHBS2005DE16178

PATIENT
  Age: 53 Year
  Sex: Female

DRUGS (6)
  1. CYCLOSPORINE [Suspect]
     Indication: BONE MARROW TRANSPLANT
     Route: 065
     Dates: start: 20030501
  2. RAPAMYCIN [Suspect]
     Indication: BONE MARROW TRANSPLANT
  3. IRRADIATION [Concomitant]
     Indication: BONE MARROW TRANSPLANT
  4. CYCLOPHOSPHAMIDE [Concomitant]
     Indication: BONE MARROW TRANSPLANT
  5. ATGAM [Concomitant]
  6. ACYCLOVIR [Concomitant]

REACTIONS (13)
  - BLOOD CREATININE INCREASED [None]
  - BRONCHOPULMONARY ASPERGILLOSIS [None]
  - CHEST PAIN [None]
  - CHILLS [None]
  - COUGH [None]
  - CYTOMEGALOVIRUS OESOPHAGITIS [None]
  - DYSPNOEA [None]
  - FEBRILE NEUTROPENIA [None]
  - HAEMATEMESIS [None]
  - MUCOSAL INFLAMMATION [None]
  - ODYNOPHAGIA [None]
  - OESOPHAGEAL STENOSIS [None]
  - WHITE BLOOD CELL COUNT DECREASED [None]
